FAERS Safety Report 11219441 (Version 1)
Quarter: 2015Q2

REPORT INFORMATION
  Report Type: Spontaneous
  Country: US (occurrence: None)
  Receive Date: 20150624
  Receipt Date: 20150624
  Transmission Date: 20150821
  Serious: Yes (Hospitalization, Other)
  Sender: FDA-Public Use
  Company Number: None

PATIENT
  Age: 53 Year
  Sex: Female
  Weight: 77.11 kg

DRUGS (3)
  1. LISINOPRIL HCL [Suspect]
     Active Substance: HYDROCHLOROTHIAZIDE\LISINOPRIL
     Indication: BLOOD PRESSURE
     Route: 048
     Dates: start: 20140801, end: 20150317
  2. ASPIRIN. [Concomitant]
     Active Substance: ASPIRIN
  3. CIPRO [Suspect]
     Active Substance: CIPROFLOXACIN HYDROCHLORIDE
     Indication: CYSTITIS
     Dates: start: 201506

REACTIONS (6)
  - Angioedema [None]
  - Reaction to drug excipients [None]
  - Loss of consciousness [None]
  - Dyspnoea [None]
  - Urticaria [None]
  - Asthenia [None]

NARRATIVE: CASE EVENT DATE: 20150317
